FAERS Safety Report 4741127-4 (Version None)
Quarter: 2005Q3

REPORT INFORMATION
  Report Type: 
  Country: None (occurrence: None)
  Receive Date: 20050810
  Receipt Date: 20040921
  Transmission Date: 20060218
  Serious: Yes (Disabling, Other)
  Sender: FDA-Public Use
  Company Number: US-GLAXOSMITHKLINE-A0527544A

PATIENT
  Sex: Female
  Weight: 92.3 kg

DRUGS (1)
  1. PAXIL [Suspect]
     Indication: ANXIETY
     Route: 048
     Dates: start: 19971216, end: 20010320

REACTIONS (11)
  - AMNESIA [None]
  - ASTHENIA [None]
  - DEPENDENCE [None]
  - DEPRESSION [None]
  - DRUG WITHDRAWAL SYNDROME [None]
  - FATIGUE [None]
  - HEADACHE [None]
  - MYOCLONUS [None]
  - PALPITATIONS [None]
  - SLEEP DISORDER [None]
  - TREMOR [None]
